FAERS Safety Report 6278348-8 (Version None)
Quarter: 2009Q3

REPORT INFORMATION
  Report Type: 
  Country: None (occurrence: None)
  Receive Date: 20090722
  Receipt Date: 20090720
  Transmission Date: 20100115
  Serious: Yes (Life-Threatening)
  Sender: FDA-Public Use
  Company Number: FR-ASTRAZENECA-2009SE05175

PATIENT
  Age: 26766 Day
  Sex: Male

DRUGS (5)
  1. DIPRIVAN [Suspect]
     Indication: ANAESTHESIA
     Route: 042
     Dates: start: 20090522, end: 20090522
  2. SUFENTA PRESERVATIVE FREE [Suspect]
     Indication: ANAESTHESIA
     Route: 042
     Dates: start: 20090522, end: 20090522
  3. SUFENTA PRESERVATIVE FREE [Suspect]
     Route: 042
     Dates: start: 20090522, end: 20090522
  4. SUFENTA PRESERVATIVE FREE [Suspect]
     Route: 042
     Dates: start: 20090522, end: 20090522
  5. TRACRIUM [Concomitant]
     Indication: ANAESTHESIA
     Route: 042
     Dates: start: 20090522, end: 20090522

REACTIONS (4)
  - ANAPHYLACTIC REACTION [None]
  - HYPOCAPNIA [None]
  - HYPOTENSION [None]
  - TACHYCARDIA [None]
